FAERS Safety Report 5046719-3 (Version None)
Quarter: 2006Q3

REPORT INFORMATION
  Report Type: 
  Country: None (occurrence: None)
  Receive Date: 20060705
  Receipt Date: 20060705
  Transmission Date: 20061208
  Serious: No
  Sender: FDA-Public Use
  Company Number: None

PATIENT
  Age: 73 Year
  Sex: Male
  Weight: 79.8331 kg

DRUGS (5)
  1. AMIODARONE HCL [Suspect]
     Indication: ATRIAL FIBRILLATION
     Dosage: ORAL 150 MG BID
     Route: 048
     Dates: start: 20060111
  2. AMIODARONE HCL [Suspect]
     Indication: ATRIAL FIBRILLATION
     Dosage: ORAL 150 MG BID
     Route: 048
     Dates: start: 20060213
  3. INDOPAMIDE [Concomitant]
  4. NORVASC [Concomitant]
  5. LISINOPRIL [Concomitant]

REACTIONS (5)
  - CHROMATURIA [None]
  - HEPATIC ENZYME INCREASED [None]
  - HEPATIC PAIN [None]
  - MALAISE [None]
  - NO THERAPEUTIC RESPONSE [None]
